FAERS Safety Report 14316266 (Version 1)
Quarter: 2017Q4

REPORT INFORMATION
  Report Type: Spontaneous
  Country: ES (occurrence: ES)
  Receive Date: 20171222
  Receipt Date: 20171222
  Transmission Date: 20180321
  Serious: Yes (Death, Hospitalization)
  Sender: FDA-Public Use
  Company Number: ES-SUN PHARMACEUTICAL INDUSTRIES LTD-2017RR-157725

PATIENT
  Age: 88 Year

DRUGS (4)
  1. GABAPENTIN. [Suspect]
     Active Substance: GABAPENTIN
     Indication: BACK PAIN
     Dosage: 1-1-1
     Route: 048
  2. DUROGESIC MATRIX 52 MICROGRAMS/H PARCHES TRANSDERMICOS [Interacting]
     Active Substance: FENTANYL
     Indication: BACK PAIN
     Dosage: 1/2 PARCHE/ 72 HORAS ()
     Route: 062
     Dates: start: 20170626, end: 20170628
  3. KEPPRA [Interacting]
     Active Substance: LEVETIRACETAM
     Indication: PRODUCT USED FOR UNKNOWN INDICATION
     Dosage: 500 MG, BID
     Route: 048
     Dates: start: 2017
  4. RISPERDAL [Interacting]
     Active Substance: RISPERIDONE
     Indication: PRODUCT USED FOR UNKNOWN INDICATION
     Dosage: 1/2-0-1/2
     Route: 048
     Dates: start: 2010

REACTIONS (2)
  - Drug interaction [None]
  - Depressed level of consciousness [Unknown]
